FAERS Safety Report 9595041 (Version 2)
Quarter: 2013Q4

REPORT INFORMATION
  Report Type: Spontaneous
  Country: GB (occurrence: GB)
  Receive Date: 20131004
  Receipt Date: 20131017
  Transmission Date: 20140711
  Serious: Yes (Hospitalization, Other)
  Sender: FDA-Public Use
  Company Number: GB-JNJFOC-20130917167

PATIENT
  Sex: Male

DRUGS (1)
  1. PALPERIDONE PALMITATE [Suspect]
     Indication: PSYCHOTIC DISORDER
     Route: 030
     Dates: start: 20130612

REACTIONS (2)
  - Injection site induration [Not Recovered/Not Resolved]
  - Pulmonary embolism [Recovered/Resolved]
